FAERS Safety Report 9745002 (Version 3)
Quarter: 2014Q1

REPORT INFORMATION
  Report Type: Spontaneous
  Country: GB (occurrence: GB)
  Receive Date: 20131211
  Receipt Date: 20140205
  Transmission Date: 20141002
  Serious: Yes (Hospitalization, Other)
  Sender: FDA-Public Use
  Company Number: GB-BRISTOL-MYERS SQUIBB COMPANY-19878289

PATIENT
  Age: 65 Year
  Sex: Male

DRUGS (5)
  1. YERVOY [Suspect]
     Indication: METASTATIC MALIGNANT MELANOMA
     Dosage: COMPLETED 4 CYCLES
     Route: 042
     Dates: start: 20130823, end: 20131107
  2. AMIODARONE [Suspect]
     Indication: ATRIAL FIBRILLATION
     Dates: end: 20131129
  3. RIVAROXABAN [Concomitant]
     Indication: ATRIAL FIBRILLATION
  4. CANDESARTAN [Concomitant]
     Indication: HYPERTENSION
  5. EZETIMIBE [Concomitant]
     Indication: HYPERCHOLESTEROLAEMIA

REACTIONS (3)
  - Peripheral sensory neuropathy [Recovered/Resolved]
  - Hypopituitarism [Recovered/Resolved]
  - Muscular weakness [Recovered/Resolved]
